FAERS Safety Report 23808754 (Version 1)
Quarter: 2024Q2

REPORT INFORMATION
  Report Type: Report from Study
  Country: ES (occurrence: ES)
  Receive Date: 20240502
  Receipt Date: 20240502
  Transmission Date: 20240715
  Serious: Yes (Hospitalization)
  Sender: FDA-Public Use
  Company Number: ES-CELLTRION HEALTHCARE HUNGARY KFT-2024ES009253

PATIENT
  Age: 36 Year
  Sex: Female

DRUGS (4)
  1. PACLITAXEL [Suspect]
     Active Substance: PACLITAXEL
     Dosage: 80 MILLIGRAM PER CUBIC METRE 1 TIME EVERY YEAR
     Route: 042
     Dates: start: 20220112, end: 20220520
  2. CARBOPLATIN [Suspect]
     Active Substance: CARBOPLATIN
     Dosage: 6 MILLIGRAM PER CUBIC METRE EVERY 3 WEEK (6 AUC IN Q3W)
     Route: 042
     Dates: start: 20220112, end: 20220520
  3. INVESTIGATIONAL BIOSIMILARS [Suspect]
     Active Substance: INVESTIGATIONAL BIOSIMILARS
     Dosage: 8/6 MG/KG
     Dates: start: 20220112, end: 20220520
  4. PERTUZUMAB [Suspect]
     Active Substance: PERTUZUMAB
     Dosage: 420 MILLIGRAM EVERY 3 WEEK
     Dates: start: 20220112, end: 20220520

REACTIONS (2)
  - Rash [Recovered/Resolved]
  - Diarrhoea [Recovered/Resolved]

NARRATIVE: CASE EVENT DATE: 20220119
